FAERS Safety Report 20643906 (Version 1)
Quarter: 2022Q1

REPORT INFORMATION
  Report Type: Spontaneous
  Country: US (occurrence: None)
  Receive Date: 20220325
  Receipt Date: 20220325
  Transmission Date: 20220423
  Serious: Yes (Life-Threatening, Hospitalization)
  Sender: FDA-Public Use
  Company Number: None

PATIENT
  Age: 63 Year
  Sex: Female

DRUGS (1)
  1. CAPECITABINE [Suspect]
     Active Substance: CAPECITABINE
     Dosage: OTHER FREQUENCY : 7 DAYS ONS 7 OFF;?
     Route: 048
     Dates: start: 202110, end: 202202

REACTIONS (5)
  - Pulmonary embolism [None]
  - Memory impairment [None]
  - Erythema [None]
  - Pain in extremity [None]
  - Chemotherapy [None]

NARRATIVE: CASE EVENT DATE: 20220203
